FAERS Safety Report 8736137 (Version 4)
Quarter: 2012Q4

REPORT INFORMATION
  Report Type: 
  Country: US (occurrence: US)
  Receive Date: 20120822
  Receipt Date: 20121204
  Transmission Date: 20130627
  Serious: Yes (Other)
  Sender: FDA-Public Use
  Company Number: US-PFIZER INC-2012193810

PATIENT
  Age: 51 Year
  Sex: Male
  Weight: 102 kg

DRUGS (16)
  1. GABAPENTIN [Suspect]
     Indication: NEUROPATHY
     Dosage: UNK
     Dates: start: 2010
  2. TRAMADOL HCL [Suspect]
     Indication: MIGRAINE
     Dosage: 50 mg, UNK
     Route: 065
  3. TAMSULOSIN HYDROCHLORIDE [Suspect]
     Indication: ENLARGED PROSTATE
     Dosage: 0.4 mg, 1x/day
  4. ALCOHOL [Suspect]
     Indication: PRODUCT USED FOR UNKNOWN INDICATION
     Dosage: UNK
     Route: 065
  5. NORVIR [Suspect]
     Indication: HUMAN IMMUNODEFICIENCY VIRUS SYNDROME
     Dosage: UNK
     Dates: end: 2007
  6. ISENTRESS [Suspect]
     Indication: HUMAN IMMUNODEFICIENCY VIRUS SYNDROME
     Dosage: 400 mg, 2x/day
     Dates: start: 20090818
  7. INTELENCE [Suspect]
     Indication: HUMAN IMMUNODEFICIENCY VIRUS SYNDROME
     Dosage: 100 mg, 4x/day
     Dates: start: 20090818
  8. INTELENCE [Suspect]
     Dosage: 200 mg, 2x/day
  9. FLOMAX [Suspect]
     Indication: ENLARGED PROSTATE
     Dosage: 0.4 mg, daily
     Route: 065
  10. VICODIN [Suspect]
     Indication: PAIN IN EXTREMITY
     Dosage: UNK
     Dates: start: 2000
  11. VICODIN [Suspect]
     Indication: LOW BACK PAIN
  12. DARUNAVIR [Suspect]
     Dosage: 200 mg, UNK
  13. IBUPROFEN [Concomitant]
     Indication: PAIN
     Dosage: 800 mg, 3x/day
     Dates: start: 2000
  14. VALIUM [Concomitant]
     Indication: ANXIETY
     Dosage: UNK
     Dates: start: 2000
  15. DIAZEPAM [Concomitant]
     Indication: ANXIETY
     Dosage: UNK
  16. EMTRIVA [Concomitant]
     Indication: HUMAN IMMUNODEFICIENCY VIRUS SYNDROME
     Dosage: 200 mg, 1x/day
     Route: 048
     Dates: start: 20090818

REACTIONS (10)
  - Urinary tract infection [Recovered/Resolved]
  - Prostatomegaly [Recovered/Resolved]
  - Erectile dysfunction [Not Recovered/Not Resolved]
  - Blood urine present [Recovered/Resolved]
  - Drug ineffective [Unknown]
  - Wrong technique in drug usage process [Unknown]
  - Hypersensitivity [Unknown]
  - Lip blister [Not Recovered/Not Resolved]
  - Somnolence [Unknown]
  - Tablet physical issue [Unknown]
